FAERS Safety Report 5900312-6 (Version None)
Quarter: 2008Q3

REPORT INFORMATION
  Report Type: 
  Country: None (occurrence: None)
  Receive Date: 20080926
  Receipt Date: 20080916
  Transmission Date: 20090109
  Serious: Yes (Hospitalization)
  Sender: FDA-Public Use
  Company Number: TR-ELI_LILLY_AND_COMPANY-TR200809004591

PATIENT
  Age: 32 Year
  Sex: Female

DRUGS (2)
  1. HUMALOG [Suspect]
     Indication: DIABETES MELLITUS
     Dosage: 27 IU, EACH MORNING
     Route: 058
     Dates: start: 20080301
  2. HUMALOG [Suspect]
     Dosage: 17 IU, EACH EVENING
     Route: 058
     Dates: start: 20080301

REACTIONS (2)
  - BREAST CANCER [None]
  - BREAST SWELLING [None]
